FAERS Safety Report 5473187-X (Version None)
Quarter: 2007Q4

REPORT INFORMATION
  Report Type: 
  Country: None (occurrence: None)
  Receive Date: 20071001
  Receipt Date: 20070925
  Transmission Date: 20080405
  Serious: Yes (Death, Life-Threatening, Hospitalization)
  Sender: FDA-Public Use
  Company Number: JP-BRISTOL-MYERS SQUIBB COMPANY-13908686

PATIENT
  Age: 66 Year
  Sex: Male

DRUGS (3)
  1. TAXOL [Suspect]
     Indication: MIXED HEPATOCELLULAR CHOLANGIOCARCINOMA
     Route: 041
     Dates: start: 20051128
  2. TS-1 [Concomitant]
     Route: 048
     Dates: start: 20051128
  3. FLUCONAZOLE [Concomitant]
     Indication: FUNGAL INFECTION

REACTIONS (5)
  - ACUTE RESPIRATORY DISTRESS SYNDROME [None]
  - ANAEMIA [None]
  - FEBRILE NEUTROPENIA [None]
  - MALAISE [None]
  - MALIGNANT NEOPLASM PROGRESSION [None]
